APPROVED DRUG PRODUCT: TADALAFIL
Active Ingredient: TADALAFIL
Strength: 5MG
Dosage Form/Route: TABLET;ORAL
Application: A090141 | Product #002 | TE Code: AB1
Applicant: TEVA PHARMACEUTICALS USA
Approved: May 22, 2018 | RLD: No | RS: No | Type: RX